FAERS Safety Report 18364668 (Version 3)
Quarter: 2020Q4

REPORT INFORMATION
  Report Type: Spontaneous
  Country: FR (occurrence: FR)
  Receive Date: 20201009
  Receipt Date: 20201023
  Transmission Date: 20210114
  Serious: Yes (Hospitalization, Other)
  Sender: FDA-Public Use
  Company Number: FR-SA-2020SA278357

PATIENT

DRUGS (5)
  1. RIFAMPICIN [Interacting]
     Active Substance: RIFAMPIN
     Dosage: 900 MG, BID
  2. SPIRAMYCIN [Interacting]
     Active Substance: SPIRAMYCIN
     Indication: PNEUMONIA LEGIONELLA
     Dosage: 3 MIU, TID (9 MU DAILY; 3 MILLIONS OF INTERNATIONAL UNITS THRICE A DAY)
  3. SPIRAMYCIN [Interacting]
     Active Substance: SPIRAMYCIN
     Dosage: 3 MIU, TID (9 MU DAILY; 3 MILLIONS OF INTERNATIONAL UNITS THRICE A DAY)
  4. AZATHIOPRINE. [Suspect]
     Active Substance: AZATHIOPRINE
     Indication: IMMUNOSUPPRESSANT DRUG THERAPY
  5. RIFAMPICIN [Suspect]
     Active Substance: RIFAMPIN
     Indication: PNEUMONIA LEGIONELLA
     Dosage: 900 MG, BID

REACTIONS (3)
  - Drug interaction [Not Recovered/Not Resolved]
  - Therapeutic response decreased [Unknown]
  - Pneumonia legionella [Not Recovered/Not Resolved]
